FAERS Safety Report 6101356-4 (Version None)
Quarter: 2009Q1

REPORT INFORMATION
  Report Type: 
  Country: None (occurrence: None)
  Receive Date: 20090303
  Receipt Date: 20090303
  Transmission Date: 20090719
  Serious: No
  Sender: FDA-Public Use
  Company Number: None

PATIENT

DRUGS (2)
  1. ACETYLCYSTEINE [Suspect]
     Indication: THERAPEUTIC AGENT TOXICITY
     Dosage: PO
     Route: 048
     Dates: start: 20090220, end: 20090228
  2. ACETYLCYSTEINE [Suspect]
     Indication: THERAPEUTIC AGENT TOXICITY
     Dosage: PO
     Route: 048

REACTIONS (2)
  - CIRCUMSTANCE OR INFORMATION CAPABLE OF LEADING TO MEDICATION ERROR [None]
  - MEDICATION ERROR [None]
